FAERS Safety Report 18468827 (Version 1)
Quarter: 2020Q4

REPORT INFORMATION
  Report Type: Spontaneous
  Country: US (occurrence: US)
  Receive Date: 20201105
  Receipt Date: 20201105
  Transmission Date: 20210114
  Serious: Yes (Hospitalization)
  Sender: FDA-Public Use
  Company Number: None

PATIENT
  Age: 27 Year
  Sex: Male
  Weight: 104.6 kg

DRUGS (10)
  1. PREDNISONE. [Concomitant]
     Active Substance: PREDNISONE
     Dates: start: 20190715
  2. SODIUM CHLORIDE. [Concomitant]
     Active Substance: SODIUM CHLORIDE
     Dates: start: 20200221, end: 20200222
  3. EXENATIDE ER [Suspect]
     Active Substance: EXENATIDE
     Indication: RENAL TRANSPLANT
     Dosage: ?          OTHER FREQUENCY:CONTROL GROUP;?
     Route: 058
  4. ACETAMENOPHEN [Concomitant]
     Dates: start: 20200221, end: 20200222
  5. TACROLIMUS. [Concomitant]
     Active Substance: TACROLIMUS
     Dates: start: 20190713
  6. LEVOFLOXACIN. [Concomitant]
     Active Substance: LEVOFLOXACIN
     Dates: start: 20200221, end: 20200226
  7. ONDANSETRON [Concomitant]
     Active Substance: ONDANSETRON
     Dates: start: 20200221, end: 20200222
  8. HYDROCODONE [Concomitant]
     Active Substance: HYDROCODONE
     Dates: start: 20200221, end: 20200221
  9. CELLCEPT [Concomitant]
     Active Substance: MYCOPHENOLATE MOFETIL\MYCOPHENOLATE MOFETIL HYDROCHLORIDE
     Dates: start: 20190711
  10. FAMOTIDINE. [Concomitant]
     Active Substance: FAMOTIDINE
     Dates: start: 20200222, end: 20200222

REACTIONS (3)
  - Vomiting [None]
  - Diarrhoea [None]
  - Nausea [None]

NARRATIVE: CASE EVENT DATE: 20200221
